FAERS Safety Report 4777749-4 (Version None)
Quarter: 2005Q3

REPORT INFORMATION
  Report Type: 
  Country: None (occurrence: None)
  Receive Date: 20050921
  Receipt Date: 20050901
  Transmission Date: 20060218
  Serious: Yes (Hospitalization)
  Sender: FDA-Public Use
  Company Number: USA030742491

PATIENT
  Age: 61 Year
  Sex: Female
  Weight: 80 kg

DRUGS (7)
  1. FORTEO [Suspect]
     Indication: OSTEOPOROSIS
     Dates: start: 20030610
  2. AREDIA [Concomitant]
  3. ACETAMINOPHEN W/HYDROCODONE [Concomitant]
  4. ROCALTROL [Concomitant]
  5. CITRACAL (CALCIUM CITRATE) [Concomitant]
  6. AMBIEN [Concomitant]
  7. ZANTAC [Concomitant]

REACTIONS (10)
  - ASTHENIA [None]
  - INJECTION SITE HAEMORRHAGE [None]
  - INJECTION SITE PAIN [None]
  - MUSCLE SPASMS [None]
  - MYOCARDIAL INFARCTION [None]
  - NAUSEA [None]
  - NEPHROLITHIASIS [None]
  - PHARMACEUTICAL PRODUCT COMPLAINT [None]
  - RASH [None]
  - VIRAL INFECTION [None]
